FAERS Safety Report 15562747 (Version 3)
Quarter: 2019Q3

REPORT INFORMATION
  Report Type: Spontaneous
  Country: US (occurrence: US)
  Receive Date: 20181029
  Receipt Date: 20190906
  Transmission Date: 20191004
  Serious: No
  Sender: FDA-Public Use
  Company Number: US-PFIZER INC-2018441987

PATIENT
  Age: 47 Year
  Sex: Female

DRUGS (1)
  1. LYRICA [Suspect]
     Active Substance: PREGABALIN
     Dosage: 400 MG, DAILY (100MG 4 A DAY)

REACTIONS (6)
  - Gait inability [Unknown]
  - Paranoia [Unknown]
  - Withdrawal syndrome [Unknown]
  - Insomnia [Unknown]
  - Pain [Unknown]
  - Nerve injury [Unknown]
